FAERS Safety Report 7250604-6 (Version None)
Quarter: 2011Q1

REPORT INFORMATION
  Report Type: 
  Country: None (occurrence: None)
  Receive Date: 20110128
  Receipt Date: 20110121
  Transmission Date: 20110831
  Serious: Yes (Other)
  Sender: FDA-Public Use
  Company Number: SE-JNJFOC-20110105452

PATIENT
  Sex: Female

DRUGS (1)
  1. HALDOL [Suspect]
     Indication: PSYCHOTIC DISORDER

REACTIONS (8)
  - OSTEOARTHRITIS [None]
  - ECZEMA [None]
  - OBESITY [None]
  - EMOTIONAL DISORDER [None]
  - PAIN [None]
  - DISTURBANCE IN ATTENTION [None]
  - SOMNOLENCE [None]
  - DIABETES MELLITUS [None]
